FAERS Safety Report 23100749 (Version 3)
Quarter: 2024Q3

REPORT INFORMATION
  Report Type: Report from Study
  Country: US (occurrence: US)
  Receive Date: 20231024
  Receipt Date: 20240912
  Transmission Date: 20241017
  Serious: Yes (Other)
  Sender: NOVARTIS
  Company Number: US-002147023-NVSC2023US226696

PATIENT
  Age: 39 Year
  Sex: Female

DRUGS (1)
  1. KESIMPTA [Suspect]
     Active Substance: OFATUMUMAB
     Indication: Product used for unknown indication
     Dosage: UNK
     Route: 065
     Dates: start: 20230912

REACTIONS (13)
  - Optic neuritis [Unknown]
  - Migraine [Unknown]
  - Fatigue [Recovering/Resolving]
  - Musculoskeletal stiffness [Recovering/Resolving]
  - Pain [Recovering/Resolving]
  - Headache [Recovering/Resolving]
  - Rash [Unknown]
  - Herpes zoster [Unknown]
  - Nasopharyngitis [Unknown]
  - Influenza [Unknown]
  - Paraesthesia [Unknown]
  - Memory impairment [Unknown]
  - Tension headache [Unknown]

NARRATIVE: CASE EVENT DATE: 20231019
